FAERS Safety Report 7991118-5 (Version None)
Quarter: 2011Q4

REPORT INFORMATION
  Report Type: 
  Country: None (occurrence: None)
  Receive Date: 20111219
  Receipt Date: 20111214
  Transmission Date: 20120403
  Serious: Yes (Other)
  Sender: FDA-Public Use
  Company Number: US-ROCHE-803129

PATIENT
  Sex: Male
  Weight: 76.272 kg

DRUGS (2)
  1. ACCUTANE [Suspect]
     Indication: ACNE
     Route: 048
     Dates: start: 19990501, end: 19991201
  2. ACCUTANE [Suspect]
     Dates: start: 20000101, end: 20000201

REACTIONS (3)
  - COLITIS ULCERATIVE [None]
  - EMOTIONAL DISTRESS [None]
  - ANAL FISSURE [None]
